FAERS Safety Report 7107342-X (Version None)
Quarter: 2010Q4

REPORT INFORMATION
  Report Type: 
  Country: None (occurrence: None)
  Receive Date: 20101112
  Receipt Date: 20101112
  Transmission Date: 20110411
  Serious: No
  Sender: FDA-Public Use
  Company Number: None

PATIENT
  Age: 38 Year
  Sex: Female
  Weight: 72.5755 kg

DRUGS (9)
  1. HYDROMORPHONE HCL [Suspect]
     Indication: LUMBAR RADICULOPATHY
     Dosage: 1 TABLET Q6H PO
     Route: 048
     Dates: start: 20101012, end: 20101015
  2. VICODIN [Concomitant]
  3. OXYCODONE/ACETAMINOPHEN (PERCOCET) [Concomitant]
  4. OXYCODONE HCL - ROXICODONE [Concomitant]
  5. OXYCONTIN [Concomitant]
  6. OPANA ER [Concomitant]
  7. OPANA IR [Concomitant]
  8. MORPHINE CR [Concomitant]
  9. MORPHINE SULFATE [Concomitant]

REACTIONS (4)
  - NAUSEA [None]
  - PRODUCT SUBSTITUTION ISSUE [None]
  - PRURITUS [None]
  - RASH [None]
